FAERS Safety Report 8808804 (Version 1)
Quarter: 2012Q4

REPORT INFORMATION
  Report Type: 
  Country: US (occurrence: US)
  Receive Date: 20120926
  Receipt Date: 20120926
  Transmission Date: 20130627
  Serious: No
  Sender: FDA-Public Use
  Company Number: US-B.I. PHARMACEUTICALS,INC./RIDGEFIELD-2012-BP-23341BP

PATIENT
  Sex: Female

DRUGS (4)
  1. SPIRIVA [Suspect]
     Indication: EMPHYSEMA
     Dosage: 18 mcg
     Route: 055
     Dates: start: 20120920
  2. FAMOTIDINE [Concomitant]
     Dosage: 40 mg
     Route: 048
  3. EVISTA [Concomitant]
     Route: 048
  4. PRILOSEC [Concomitant]
     Indication: GASTRIC DISORDER
     Route: 048

REACTIONS (4)
  - Dysphonia [Not Recovered/Not Resolved]
  - Pharyngeal oedema [Not Recovered/Not Resolved]
  - Aphonia [Not Recovered/Not Resolved]
  - Sensation of foreign body [Not Recovered/Not Resolved]
